FAERS Safety Report 4289626-6 (Version None)
Quarter: 2004Q1

REPORT INFORMATION
  Report Type: 
  Country: None (occurrence: None)
  Receive Date: 20040129
  Receipt Date: 20031106
  Transmission Date: 20041129
  Serious: Yes (Hospitalization)
  Sender: FDA-Public Use
  Company Number: A001-002-005869

PATIENT
  Age: 72 Year
  Sex: Male
  Weight: 75 kg

DRUGS (4)
  1. ARICEPT [Suspect]
     Indication: AMNESIA
     Dosage: ORAL
     Route: 048
     Dates: start: 20030101
  2. INSULIN [Concomitant]
  3. GLUCOPHAGE [Concomitant]
  4. VITAMINS (VITAMINS) [Concomitant]

REACTIONS (2)
  - DIZZINESS [None]
  - NAUSEA [None]
